FAERS Safety Report 12081845 (Version 2)
Quarter: 2016Q2

REPORT INFORMATION
  Report Type: Spontaneous
  Country: JP (occurrence: JP)
  Receive Date: 20160216
  Receipt Date: 20160422
  Transmission Date: 20160815
  Serious: Yes (Hospitalization)
  Sender: FDA-Public Use
  Company Number: JP-AMGEN-JPNSP2016016734

PATIENT
  Age: 68 Year
  Sex: Female
  Weight: 51 kg

DRUGS (7)
  1. RHEUMATREX [Suspect]
     Active Substance: METHOTREXATE SODIUM
     Indication: PRODUCT USED FOR UNKNOWN INDICATION
     Dosage: 10 MG, WEEKLY
     Route: 048
  2. FOLIAMIN [Concomitant]
     Active Substance: FOLIC ACID
     Dosage: 1 DF, WEEKLY
     Route: 048
  3. GLAKAY [Concomitant]
     Active Substance: MENATETRENONE
     Dosage: 3 DF, UNK
     Route: 048
  4. ENBREL [Suspect]
     Active Substance: ETANERCEPT
     Dosage: 25 MG, 2X/WEEK
     Route: 058
  5. FOLIAMIN [Concomitant]
     Active Substance: FOLIC ACID
     Dosage: 1 DF, WEEKLY
     Route: 048
  6. ENBREL [Suspect]
     Active Substance: ETANERCEPT
     Indication: PRODUCT USED FOR UNKNOWN INDICATION
     Dosage: 25 MG, 2X/WEEK
     Route: 058
  7. GLAKAY [Concomitant]
     Active Substance: MENATETRENONE
     Dosage: 3 DF, UNK
     Route: 048

REACTIONS (2)
  - Breast discomfort [Unknown]
  - Pubis fracture [Unknown]

NARRATIVE: CASE EVENT DATE: 20160129
